FAERS Safety Report 13010504 (Version 1)
Quarter: 2016Q4

REPORT INFORMATION
  Report Type: Report from Study
  Country: KR (occurrence: KR)
  Receive Date: 20161208
  Receipt Date: 20161208
  Transmission Date: 20170207
  Serious: Yes (Death)
  Sender: FDA-Public Use
  Company Number: KR-GLAXOSMITHKLINE-KR2016GSK182128

PATIENT
  Age: 25 Year
  Sex: Female

DRUGS (13)
  1. DICLOFENAC [Suspect]
     Active Substance: DICLOFENAC
  2. NORDAZEPAM [Suspect]
     Active Substance: NORDAZEPAM
  3. CARBAMAZEPINE. [Suspect]
     Active Substance: CARBAMAZEPINE
  4. PHENOBARBITAL. [Suspect]
     Active Substance: PHENOBARBITAL
  5. DIAZEPAM. [Suspect]
     Active Substance: DIAZEPAM
  6. BENZTROPINE [Suspect]
     Active Substance: BENZTROPINE
  7. MIDAZOLAM [Suspect]
     Active Substance: MIDAZOLAM\MIDAZOLAM HYDROCHLORIDE
  8. AMITRIPTYLINE [Suspect]
     Active Substance: AMITRIPTYLINE
  9. LORAZEPAM. [Suspect]
     Active Substance: LORAZEPAM
  10. CHLORPROMAZINE. [Suspect]
     Active Substance: CHLORPROMAZINE
  11. BROMAZEPAM [Suspect]
     Active Substance: BROMAZEPAM
  12. HALOPERIDOL. [Suspect]
     Active Substance: HALOPERIDOL
  13. NORTRIPTYLINE [Suspect]
     Active Substance: NORTRIPTYLINE

REACTIONS (1)
  - Toxicity to various agents [Fatal]
